FAERS Safety Report 7598097-3 (Version None)
Quarter: 2011Q3

REPORT INFORMATION
  Report Type: 
  Country: None (occurrence: None)
  Receive Date: 20110708
  Receipt Date: 20110704
  Transmission Date: 20111222
  Serious: Yes (Death, Other)
  Sender: FDA-Public Use
  Company Number: FR-VERTEX PHARMACEUTICALS INC.-AE-2011-000420

PATIENT
  Sex: Male
  Weight: 87 kg

DRUGS (7)
  1. PROPRANOLOL [Concomitant]
     Indication: HYPERTENSION
     Route: 048
  2. PEGASYS [Concomitant]
     Indication: HEPATITIS C
     Route: 058
     Dates: start: 20110418
  3. PROPRANOLOL [Concomitant]
     Indication: VARICES OESOPHAGEAL
  4. VX-950 [Suspect]
     Indication: HEPATITIS C
     Route: 048
  5. DUPHALAC [Concomitant]
     Indication: HEPATIC ENCEPHALOPATHY
     Route: 048
  6. NOROXIN [Concomitant]
     Indication: INFECTION PROPHYLAXIS
     Route: 048
     Dates: start: 20110501
  7. COPEGUS [Concomitant]
     Indication: HEPATITIS C
     Route: 048
     Dates: start: 20110418

REACTIONS (3)
  - MYOCARDIAL INFARCTION [None]
  - CORONARY ARTERY THROMBOSIS [None]
  - INFECTION [None]
